FAERS Safety Report 7397990-4 (Version None)
Quarter: 2011Q2

REPORT INFORMATION
  Report Type: 
  Country: None (occurrence: None)
  Receive Date: 20110406
  Receipt Date: 20110324
  Transmission Date: 20111010
  Serious: Yes (Other)
  Sender: FDA-Public Use
  Company Number: PHEH2006US06651

PATIENT
  Sex: Male
  Weight: 65.759 kg

DRUGS (22)
  1. CELLCEPT [Concomitant]
     Dosage: 2 G, QD
     Route: 048
  2. BACTRIM [Concomitant]
     Indication: SKIN ULCER
     Dosage: TWICE WEEKLY
     Route: 048
  3. TRICOR [Concomitant]
  4. NEXIUM [Concomitant]
  5. VANCOMYCIN [Concomitant]
  6. AREDIA [Suspect]
     Indication: OSTEOPOROSIS PROPHYLAXIS
     Dosage: EVERY 3 MONTHS
  7. INFLUENZA VACCINE [Concomitant]
     Dosage: UNK
  8. LORTAB [Concomitant]
  9. KEPPRA [Concomitant]
  10. ZYVOX [Concomitant]
     Dosage: UNK
  11. AMOXICILLIN [Concomitant]
     Dosage: UNK
  12. CALCIUM W/VITAMIN D NOS [Concomitant]
  13. FAMVIR [Concomitant]
     Indication: MOUTH ULCERATION
     Dosage: UNK, PRN
  14. GLUCOSAMINE [Concomitant]
  15. OS-CAL [Concomitant]
  16. ACYCLOVIR [Concomitant]
  17. MEDROL [Concomitant]
  18. PROGRAF [Concomitant]
     Dosage: 2 MG, QD
     Route: 048
  19. ZOMETA [Suspect]
     Indication: OSTEOPOROSIS PROPHYLAXIS
     Dosage: EVERY 3 MONTHS
  20. FOSAMAX [Suspect]
     Dates: start: 19990101
  21. PLAQUENIL [Concomitant]
     Dosage: 800 MG, QD
     Route: 048
  22. CITRACAL [Concomitant]

REACTIONS (68)
  - OSTEONECROSIS OF JAW [None]
  - EXCESSIVE GRANULATION TISSUE [None]
  - ULCERATIVE KERATITIS [None]
  - IMPAIRED HEALING [None]
  - ALOPECIA [None]
  - TELANGIECTASIA [None]
  - NEUTROPENIA [None]
  - GRAND MAL CONVULSION [None]
  - BONE DISORDER [None]
  - GINGIVAL RECESSION [None]
  - PERIODONTITIS [None]
  - NYSTAGMUS [None]
  - CONVULSION [None]
  - SICCA SYNDROME [None]
  - OBSTRUCTIVE AIRWAYS DISORDER [None]
  - CATHETER SITE INFECTION [None]
  - TINNITUS [None]
  - DRY MOUTH [None]
  - GENERAL PHYSICAL HEALTH DETERIORATION [None]
  - OSTEOMYELITIS [None]
  - GRAFT VERSUS HOST DISEASE [None]
  - COLON ADENOMA [None]
  - DYSPHAGIA [None]
  - PAIN [None]
  - SKIN ULCER [None]
  - SPINAL DEFORMITY [None]
  - TRACHEAL DEVIATION [None]
  - SCAR [None]
  - KYPHOSCOLIOSIS [None]
  - DYSARTHRIA [None]
  - OSTEORADIONECROSIS [None]
  - POOR PERSONAL HYGIENE [None]
  - GINGIVAL BLEEDING [None]
  - JOINT RANGE OF MOTION DECREASED [None]
  - DIVERTICULUM INTESTINAL [None]
  - COLONIC POLYP [None]
  - EPISTAXIS [None]
  - PARAESTHESIA [None]
  - EXCORIATION [None]
  - SKIN EXFOLIATION [None]
  - VASOCONSTRICTION [None]
  - MOUTH ULCERATION [None]
  - SUBDURAL HAEMATOMA [None]
  - DENTAL CARIES [None]
  - VERTIGO [None]
  - CELLULITIS [None]
  - OEDEMA PERIPHERAL [None]
  - PRIMARY SEQUESTRUM [None]
  - GINGIVITIS [None]
  - OSTEONECROSIS [None]
  - ARTHRALGIA [None]
  - WOUND [None]
  - ACTIVITIES OF DAILY LIVING IMPAIRED [None]
  - PNEUMONIA [None]
  - OSTEOARTHRITIS [None]
  - FALL [None]
  - INJURY [None]
  - BONE LESION [None]
  - SENSORY LOSS [None]
  - HYPOAESTHESIA [None]
  - ATROPHY [None]
  - ANXIETY [None]
  - ERYTHEMA [None]
  - TOOTH FRACTURE [None]
  - CONTUSION [None]
  - DRY EYE [None]
  - COUGH [None]
  - FOOT DEFORMITY [None]
